FAERS Safety Report 5973050-1 (Version None)
Quarter: 2008Q4

REPORT INFORMATION
  Report Type: 
  Country: None (occurrence: None)
  Receive Date: 20081201
  Receipt Date: 20081119
  Transmission Date: 20090506
  Serious: Yes (Other)
  Sender: FDA-Public Use
  Company Number: CO-ROCHE-598279

PATIENT
  Sex: Female
  Weight: 150 kg

DRUGS (3)
  1. BONIVA [Suspect]
     Indication: OSTEOPOROSIS
     Route: 048
     Dates: start: 20080201, end: 20081101
  2. TAMOXIFEN [Concomitant]
     Indication: BREAST CANCER
     Dosage: FREQUENCY: DAILY
     Route: 048
     Dates: end: 20040101
  3. CHEMOTHERAPY [Concomitant]
     Dosage: RECEIVED 6 CYCLES

REACTIONS (3)
  - BONE SARCOMA [None]
  - PAIN IN JAW [None]
  - POOR DENTAL CONDITION [None]
